FAERS Safety Report 6314101-4 (Version None)
Quarter: 2009Q3

REPORT INFORMATION
  Report Type: 
  Country: None (occurrence: None)
  Receive Date: 20090817
  Receipt Date: 20090803
  Transmission Date: 20100115
  Serious: No
  Sender: FDA-Public Use
  Company Number: 2009-0015

PATIENT
  Age: 13 Year
  Sex: Female

DRUGS (8)
  1. METOCLOPRAMIDE [Suspect]
     Indication: GASTROINTESTINAL MOTILITY DISORDER
     Dosage: 5 ML Q6HRS
  2. VITAMINS [Concomitant]
  3. AZITHROMYACIN [Concomitant]
  4. LANSOPRAMAZOLE [Concomitant]
  5. MONTELUKAST [Concomitant]
  6. PANCRELIPASE [Concomitant]
  7. ZANTAC [Concomitant]
  8. SUCRALSATE [Concomitant]

REACTIONS (1)
  - MUSCULOSKELETAL STIFFNESS [None]
